FAERS Safety Report 26101596 (Version 1)
Quarter: 2025Q4

REPORT INFORMATION
  Report Type: Report from Study
  Country: RU (occurrence: RU)
  Receive Date: 20251128
  Receipt Date: 20251128
  Transmission Date: 20260118
  Serious: Yes (Other)
  Sender: RANBAXY
  Company Number: RU-SUN PHARMACEUTICAL INDUSTRIES LTD-2025R1-538931

PATIENT

DRUGS (3)
  1. GEMCITABINE [Suspect]
     Active Substance: GEMCITABINE
     Indication: Cholangiocarcinoma
     Dosage: 750-1250 MG/M? ON DAY 1 AND 8
     Route: 042
     Dates: start: 202302, end: 202306
  2. CISPLATIN [Suspect]
     Active Substance: CISPLATIN
     Indication: Cholangiocarcinoma
     Dosage: 25 MG/M? ON DAYS 1 AND 8
     Route: 042
     Dates: start: 202302, end: 202306
  3. DURVALUMAB [Suspect]
     Active Substance: DURVALUMAB
     Indication: Cholangiocarcinoma
     Dosage: 1500 MILLIGRAM
     Route: 042
     Dates: start: 202302, end: 202306

REACTIONS (5)
  - Metastasis [Unknown]
  - Portal hypertension [Unknown]
  - Portal vein thrombosis [Unknown]
  - Thrombocytopenia [Unknown]
  - Varices oesophageal [Unknown]
